FAERS Safety Report 12435434 (Version 1)
Quarter: 2016Q2

REPORT INFORMATION
  Report Type: Spontaneous
  Country: US (occurrence: US)
  Receive Date: 20160603
  Receipt Date: 20160603
  Transmission Date: 20160815
  Serious: No
  Sender: FDA-Public Use
  Company Number: US-ROCHE-1618871

PATIENT

DRUGS (2)
  1. KLONOPIN [Suspect]
     Active Substance: CLONAZEPAM
     Indication: PANIC DISORDER
  2. KLONOPIN [Suspect]
     Active Substance: CLONAZEPAM
     Indication: ANXIETY
     Dosage: POTENCY: 2 MG
     Route: 065

REACTIONS (6)
  - Pyrexia [Unknown]
  - Decreased appetite [Unknown]
  - Hyperaesthesia [Unknown]
  - Drug ineffective [Unknown]
  - Lethargy [Unknown]
  - Product quality issue [Unknown]
